FAERS Safety Report 7605187-5 (Version None)
Quarter: 2011Q3

REPORT INFORMATION
  Report Type: 
  Country: None (occurrence: None)
  Receive Date: 20110705
  Receipt Date: 20110622
  Transmission Date: 20111222
  Serious: Yes (Hospitalization)
  Sender: FDA-Public Use
  Company Number: JP-1186806

PATIENT
  Age: 68 Year
  Sex: Male

DRUGS (2)
  1. TIMOPTOL [Concomitant]
  2. TRAVATAN Z [Suspect]
     Indication: OPEN ANGLE GLAUCOMA
     Dosage: 1 GTT QD OU OPHTHALMIC
     Route: 047
     Dates: start: 20100629, end: 20110216

REACTIONS (1)
  - DRUG INEFFECTIVE [None]
